FAERS Safety Report 25782382 (Version 1)
Quarter: 2025Q3

REPORT INFORMATION
  Report Type: Report from Study
  Country: EU (occurrence: EU)
  Receive Date: 20250909
  Receipt Date: 20250909
  Transmission Date: 20251021
  Serious: Yes (Other)
  Sender: ABBVIE
  Company Number: EU-ABBVIE-6448367

PATIENT
  Age: 77 Year
  Sex: Male

DRUGS (2)
  1. FOSCARBIDOPA\FOSLEVODOPA [Suspect]
     Active Substance: FOSCARBIDOPA\FOSLEVODOPA
     Indication: Parkinson^s disease
     Route: 058
     Dates: start: 20250311
  2. RITUXIMAB [Concomitant]
     Active Substance: RITUXIMAB
     Indication: B-cell lymphoma

REACTIONS (12)
  - Femoral neck fracture [Unknown]
  - Skin induration [Not Recovered/Not Resolved]
  - Hyperkinesia [Unknown]
  - Injection site abscess [Unknown]
  - Orthostatic hypotension [Unknown]
  - Weight decreased [Unknown]
  - Erythema [Not Recovered/Not Resolved]
  - Inflammation [Recovered/Resolved]
  - Loss of consciousness [Unknown]
  - Fall [Unknown]
  - Cataract [Unknown]
  - Dystonia [Unknown]

NARRATIVE: CASE EVENT DATE: 20250101
